FAERS Safety Report 7831901-X (Version None)
Quarter: 2011Q4

REPORT INFORMATION
  Report Type: 
  Country: None (occurrence: None)
  Receive Date: 20111021
  Receipt Date: 20111014
  Transmission Date: 20120403
  Serious: Yes (Other)
  Sender: FDA-Public Use
  Company Number: US-ASTRAZENECA-2011SE61829

PATIENT
  Age: 16 Year
  Sex: Male

DRUGS (2)
  1. BUDESONIDE [Suspect]
     Route: 048
  2. BUDESONIDE [Suspect]
     Route: 048

REACTIONS (4)
  - GROWTH RETARDATION [None]
  - OSTEOPOROSIS [None]
  - CUSHINGOID [None]
  - ADRENAL INSUFFICIENCY [None]
